FAERS Safety Report 7275712-5 (Version None)
Quarter: 2011Q1

REPORT INFORMATION
  Report Type: 
  Country: None (occurrence: None)
  Receive Date: 20110131
  Receipt Date: 20110114
  Transmission Date: 20110831
  Serious: Yes (Hospitalization)
  Sender: FDA-Public Use
  Company Number: 023638

PATIENT
  Age: 48 Year
  Sex: Female

DRUGS (2)
  1. URBANYL [Concomitant]
  2. LEVETIRACETAM [Suspect]
     Indication: PARTIAL SEIZURES
     Dosage: 10000 MG,
     Dates: start: 20060324, end: 20060822

REACTIONS (1)
  - PANCYTOPENIA [None]
